FAERS Safety Report 21952121 (Version 1)
Quarter: 2023Q1

REPORT INFORMATION
  Report Type: Other
  Country: US (occurrence: US)
  Receive Date: 20230203
  Receipt Date: 20230203
  Transmission Date: 20230418
  Serious: Yes (Hospitalization)
  Sender: FDA-Public Use
  Company Number: US-MAYNE PHARMA-2023MYN000157

PATIENT

DRUGS (2)
  1. CLOZAPINE [Suspect]
     Active Substance: CLOZAPINE
     Indication: Hallucination, auditory
     Dosage: UNK, 2 WEEKS
     Route: 065
  2. CLOZAPINE [Suspect]
     Active Substance: CLOZAPINE
     Indication: Hallucination, auditory
     Dosage: 50 MG, BID
     Route: 065
     Dates: end: 20230125

REACTIONS (4)
  - Illness [Unknown]
  - Swollen tongue [Unknown]
  - Pyrexia [Recovered/Resolved]
  - Eosinophil count increased [Unknown]
